FAERS Safety Report 15762306 (Version 1)
Quarter: 2018Q4

REPORT INFORMATION
  Report Type: Spontaneous
  Country: GB (occurrence: GB)
  Receive Date: 20181226
  Receipt Date: 20181226
  Transmission Date: 20190205
  Serious: Yes (Other)
  Sender: FDA-Public Use
  Company Number: GB-PFIZER INC-2018520258

PATIENT
  Age: 26 Year
  Sex: Female
  Weight: 107.95 kg

DRUGS (2)
  1. SERTRALINE HCL [Suspect]
     Active Substance: SERTRALINE HYDROCHLORIDE
     Indication: DEPRESSION
     Dosage: 50 MG, 1X/DAY
     Route: 048
     Dates: start: 20181101, end: 20181120
  2. SCHERIPROCT [CINCHOCAINE HYDROCHLORIDE;HEXACHLOROPHENE;PREDNISOLONE] [Concomitant]
     Dosage: UNK, DAILY

REACTIONS (2)
  - Bruxism [Recovered/Resolved]
  - Sleep disorder [Recovered/Resolved]

NARRATIVE: CASE EVENT DATE: 20181110
